FAERS Safety Report 9363103 (Version 1)
Quarter: 2013Q2

REPORT INFORMATION
  Report Type: Spontaneous
  Country: US (occurrence: US)
  Receive Date: 20130624
  Receipt Date: 20130624
  Transmission Date: 20140414
  Serious: No
  Sender: FDA-Public Use
  Company Number: US-PFIZER INC-2013185207

PATIENT
  Age: 45 Year
  Sex: Female

DRUGS (5)
  1. DAYPRO [Suspect]
     Dosage: UNK
  2. ADDERALL [Suspect]
     Dosage: UNK
  3. BACTRIM [Suspect]
     Dosage: UNK
  4. NAPROSYN [Suspect]
     Dosage: UNK
  5. SEROQUEL [Suspect]
     Dosage: UNK

REACTIONS (1)
  - Drug hypersensitivity [Unknown]
